FAERS Safety Report 23139568 (Version 3)
Quarter: 2025Q1

REPORT INFORMATION
  Report Type: Report from Study
  Country: GB (occurrence: GB)
  Receive Date: 20231102
  Receipt Date: 20250120
  Transmission Date: 20250408
  Serious: Yes (Hospitalization, Other)
  Sender: TEVA
  Company Number: GB-TEVA-2023-GB-2941098

PATIENT
  Age: 37 Year
  Sex: Female

DRUGS (1)
  1. AJOVY [Suspect]
     Active Substance: FREMANEZUMAB-VFRM
     Indication: Migraine
     Dosage: DOSAGE TEXT: 225MG/1.5ML
     Route: 058

REACTIONS (6)
  - Migraine [Unknown]
  - Ammonia abnormal [Unknown]
  - Nerve injury [Unknown]
  - Aphasia [Recovering/Resolving]
  - Movement disorder [Unknown]
  - Hospitalisation [Unknown]

NARRATIVE: CASE EVENT DATE: 20230101
